FAERS Safety Report 20069732 (Version 1)
Quarter: 2021Q4

REPORT INFORMATION
  Report Type: Spontaneous
  Country: GB (occurrence: GB)
  Receive Date: 20211115
  Receipt Date: 20211115
  Transmission Date: 20220303
  Serious: Yes (Other)
  Sender: FDA-Public Use
  Company Number: None

PATIENT
  Age: 49 Year
  Sex: Male
  Weight: 100 kg

DRUGS (10)
  1. MIRTAZAPINE [Suspect]
     Active Substance: MIRTAZAPINE
     Indication: Product used for unknown indication
     Dosage: 15 MILLIGRAM
     Dates: start: 20211103
  2. BETAMETHASONE VALERATE [Concomitant]
     Active Substance: BETAMETHASONE VALERATE
     Dosage: 1 DOSAGE FORM, BID, APPLY
     Dates: start: 20210913
  3. DERMOL                             /00337102/ [Concomitant]
     Dosage: UNK, TO BE APPLIED
     Dates: start: 20210419
  4. GABAPENTIN [Concomitant]
     Active Substance: GABAPENTIN
     Dosage: 3 DOSAGE FORM, BID
     Dates: start: 20210419
  5. HYDROCORTISONE ACETATE [Concomitant]
     Active Substance: HYDROCORTISONE ACETATE
     Dosage: 1 DOSAGE FORM, BID
     Dates: start: 20210913
  6. LANSOPRAZOLE [Concomitant]
     Active Substance: LANSOPRAZOLE
     Dosage: 1 DOSAGE FORM, BID
     Dates: start: 20210518
  7. MOVICOL                            /01749801/ [Concomitant]
     Dosage: UNK
     Dates: start: 20210628
  8. OXYCODONE HYDROCHLORIDE [Concomitant]
     Active Substance: OXYCODONE HYDROCHLORIDE
     Dosage: 10 MILLILITER, TID, SPOONFULS
     Dates: start: 20210419
  9. PROMETHAZINE HYDROCHLORIDE [Concomitant]
     Active Substance: PROMETHAZINE HYDROCHLORIDE
     Dosage: 1 DOSAGE FORM, QD, AT NIGHT
     Dates: start: 20211103
  10. CARBOMER [Concomitant]
     Active Substance: CARBOMER
     Dosage: 1 GTT DROPS, INTO THE AFFECTED EYE
     Dates: start: 20210419

REACTIONS (1)
  - Neutropenia [Recovered/Resolved]

NARRATIVE: CASE EVENT DATE: 20211104
